FAERS Safety Report 11081795 (Version 1)
Quarter: 2015Q2

REPORT INFORMATION
  Report Type: Spontaneous
  Country: US (occurrence: US)
  Receive Date: 20150501
  Receipt Date: 20150501
  Transmission Date: 20150821
  Serious: No
  Sender: FDA-Public Use
  Company Number: US-PFIZER INC-2015144465

PATIENT
  Sex: Male

DRUGS (4)
  1. LINEZOLID. [Concomitant]
     Active Substance: LINEZOLID
  2. TYGACIL [Suspect]
     Active Substance: TIGECYCLINE
     Indication: MYCOBACTERIUM CHELONAE INFECTION
     Dosage: 50 MG, 2X/DAY
     Route: 042
     Dates: start: 20150416
  3. TYGACIL [Suspect]
     Active Substance: TIGECYCLINE
     Indication: OSTEOMYELITIS
  4. AZITHROMYCIN [Concomitant]
     Active Substance: AZITHROMYCIN ANHYDROUS

REACTIONS (1)
  - Drug hypersensitivity [Unknown]
